FAERS Safety Report 10261039 (Version 1)
Quarter: 2014Q2

REPORT INFORMATION
  Report Type: Spontaneous
  Country: US (occurrence: US)
  Receive Date: 20140626
  Receipt Date: 20140626
  Transmission Date: 20141212
  Serious: No
  Sender: FDA-Public Use
  Company Number: US-PFIZER INC-2014175717

PATIENT
  Age: 56 Year
  Sex: Female
  Weight: 81.63 kg

DRUGS (6)
  1. LYRICA [Suspect]
     Indication: POST HERPETIC NEURALGIA
     Dosage: 75 MG, 2X/DAY
     Route: 048
     Dates: start: 201405, end: 20140620
  2. OMEPRAZOLE [Concomitant]
     Dosage: 40 MG, 1X/DAY
  3. METAXALONE [Concomitant]
     Dosage: 800 MG, 1X/DAY
  4. ZOLOFT [Concomitant]
     Dosage: 100 MG, 1X/DAY
  5. METFORMIN [Concomitant]
     Dosage: 500 MG, 1X/DAY
  6. HYDROCHLOROTHIAZIDE [Concomitant]
     Dosage: 12.5 MG, 1X/DAY

REACTIONS (1)
  - Migraine [Unknown]
